FAERS Safety Report 13922310 (Version 1)
Quarter: 2017Q3

REPORT INFORMATION
  Report Type: Spontaneous
  Country: US (occurrence: US)
  Receive Date: 20170830
  Receipt Date: 20170830
  Transmission Date: 20171127
  Serious: Yes (Other)
  Sender: FDA-Public Use
  Company Number: PHEH2017US027180

PATIENT
  Sex: Male
  Weight: 149.66 kg

DRUGS (7)
  1. QUDEXY XR [Suspect]
     Active Substance: TOPIRAMATE
     Dosage: 50 MG, BID
     Route: 048
  2. TRILEPTAL [Suspect]
     Active Substance: OXCARBAZEPINE
     Indication: SEIZURE
     Dosage: 3600 MG, UNK
     Route: 065
  3. QUDEXY XR [Suspect]
     Active Substance: TOPIRAMATE
     Indication: SEIZURE
     Dosage: 50 MG, QD
     Route: 048
     Dates: start: 2015
  4. QUDEXY XR [Suspect]
     Active Substance: TOPIRAMATE
     Dosage: 200 MG, QD
     Route: 048
  5. QUDEXY XR [Suspect]
     Active Substance: TOPIRAMATE
     Dosage: 200 MG, BID
     Route: 048
  6. QUDEXY XR [Suspect]
     Active Substance: TOPIRAMATE
     Dosage: 450 MG, QD (200 MG, BID AND 50 MG, QD)
     Route: 048
  7. ALLEGRA-D [Concomitant]
     Active Substance: FEXOFENADINE\PSEUDOEPHEDRINE
     Indication: PRODUCT USED FOR UNKNOWN INDICATION
     Dosage: UNK
     Route: 065

REACTIONS (2)
  - Drug ineffective [Not Recovered/Not Resolved]
  - Seizure [Not Recovered/Not Resolved]
